FAERS Safety Report 8884480 (Version 1)
Quarter: 2012Q4

REPORT INFORMATION
  Report Type: 
  Country: US (occurrence: US)
  Receive Date: 20121102
  Receipt Date: 20121102
  Transmission Date: 20130627
  Serious: No
  Sender: FDA-Public Use
  Company Number: US-ASTRAZENECA-2012SE18355

PATIENT
  Age: 73 Year
  Sex: Female

DRUGS (1)
  1. CRESTOR [Suspect]
     Indication: HYPERCHOLESTEROLAEMIA
     Route: 048
     Dates: start: 2009

REACTIONS (5)
  - Hypoaesthesia oral [Unknown]
  - Hypoaesthesia oral [Unknown]
  - Swollen tongue [Unknown]
  - Lip swelling [Unknown]
  - Hypersensitivity [Unknown]
